FAERS Safety Report 23673180 (Version 7)
Quarter: 2025Q1

REPORT INFORMATION
  Report Type: Spontaneous
  Country: US (occurrence: US)
  Receive Date: 20240326
  Receipt Date: 20250204
  Transmission Date: 20250409
  Serious: Yes (Hospitalization, Other)
  Sender: PFIZER
  Company Number: US-PFIZER INC-PV202400038844

PATIENT
  Age: 86 Year
  Sex: Male

DRUGS (1)
  1. TIKOSYN [Suspect]
     Active Substance: DOFETILIDE
     Dosage: 2 CAPSULES TWICE DAILY

REACTIONS (2)
  - Cardiac failure congestive [Unknown]
  - Intentional product use issue [Unknown]
